FAERS Safety Report 12299198 (Version 1)
Quarter: 2016Q2

REPORT INFORMATION
  Report Type: Spontaneous
  Country: US (occurrence: US)
  Receive Date: 20160425
  Receipt Date: 20160425
  Transmission Date: 20160815
  Serious: Yes (Other)
  Sender: FDA-Public Use
  Company Number: US-PAR PHARMACEUTICAL COMPANIES-2016SCPR015375

PATIENT

DRUGS (1)
  1. PITOCIN [Suspect]
     Active Substance: OXYTOCIN
     Indication: LABOUR STIMULATION
     Dosage: UNK UNK, UNKNOWN
     Route: 065

REACTIONS (1)
  - Caesarean section [Unknown]
